FAERS Safety Report 10563165 (Version 3)
Quarter: 2014Q4

REPORT INFORMATION
  Report Type: Spontaneous
  Country: GB (occurrence: GB)
  Receive Date: 20141104
  Receipt Date: 20141201
  Transmission Date: 20150529
  Serious: Yes (Life-Threatening, Hospitalization)
  Sender: FDA-Public Use
  Company Number: GB-SA-2014SA144811

PATIENT
  Age: 83 Year
  Sex: Female
  Weight: 83 kg

DRUGS (10)
  1. TRAMADOL [Concomitant]
     Active Substance: TRAMADOL
     Indication: OSTEOARTHRITIS
     Route: 048
  2. CETIRIZINE [Concomitant]
     Active Substance: CETIRIZINE HYDROCHLORIDE
     Route: 048
  3. BETAMETHASONE VALERATE. [Concomitant]
     Active Substance: BETAMETHASONE VALERATE
     Route: 061
  4. CLEXANE [Suspect]
     Active Substance: ENOXAPARIN SODIUM
     Indication: PULMONARY EMBOLISM
     Route: 058
     Dates: start: 20141016, end: 20141016
  5. ALLOPURINOL. [Concomitant]
     Active Substance: ALLOPURINOL
     Indication: GOUT
     Route: 048
  6. AMLODIPINE [Concomitant]
     Active Substance: AMLODIPINE BESYLATE
     Indication: HYPERTENSION
     Route: 048
  7. ASPIRIN. [Suspect]
     Active Substance: ASPIRIN
     Indication: ATRIAL FIBRILLATION
     Route: 048
  8. DAKTACORT [Concomitant]
     Active Substance: HYDROCORTISONE\MICONAZOLE NITRATE
     Route: 061
  9. LISINOPRIL. [Concomitant]
     Active Substance: LISINOPRIL
     Indication: HYPERTENSION
     Route: 048
  10. CLEXANE [Suspect]
     Active Substance: ENOXAPARIN SODIUM
     Indication: FIBRIN D DIMER INCREASED
     Route: 058
     Dates: start: 20141016, end: 20141016

REACTIONS (4)
  - Gastric ulcer [Unknown]
  - Haemoglobin decreased [Unknown]
  - Gastric ulcer haemorrhage [Recovered/Resolved with Sequelae]
  - Melaena [Unknown]

NARRATIVE: CASE EVENT DATE: 20141017
